FAERS Safety Report 7932742-5 (Version None)
Quarter: 2011Q4

REPORT INFORMATION
  Report Type: 
  Country: None (occurrence: None)
  Receive Date: 20111122
  Receipt Date: 20111114
  Transmission Date: 20120403
  Serious: Yes (Other)
  Sender: FDA-Public Use
  Company Number: US-JNJFOC-20110910592

PATIENT
  Sex: Male
  Weight: 90.72 kg

DRUGS (6)
  1. REMICADE [Suspect]
     Indication: COLITIS ULCERATIVE
     Route: 042
     Dates: start: 20060613
  2. PREDNISONE TAB [Concomitant]
     Indication: COLITIS ULCERATIVE
  3. LIALDA [Concomitant]
     Indication: COLITIS ULCERATIVE
     Route: 048
     Dates: start: 20100101
  4. MERCAPTOPURINE [Concomitant]
     Indication: COLITIS ULCERATIVE
     Dosage: 50MG TABLET, 1 1/2 TABLETS PER DAY
     Route: 048
     Dates: start: 20100101
  5. PREDNISONE TAB [Concomitant]
     Indication: PREMEDICATION
  6. REMICADE [Suspect]
     Route: 042
     Dates: start: 20110825

REACTIONS (4)
  - TYPE IV HYPERSENSITIVITY REACTION [None]
  - JOINT STIFFNESS [None]
  - DEHYDRATION [None]
  - MUSCULOSKELETAL STIFFNESS [None]
